FAERS Safety Report 5030247-5 (Version None)
Quarter: 2006Q2

REPORT INFORMATION
  Report Type: 
  Country: None (occurrence: None)
  Receive Date: 20060620
  Receipt Date: 20060608
  Transmission Date: 20061013
  Serious: Yes (Other)
  Sender: FDA-Public Use
  Company Number: US-ROCHE-451341

PATIENT
  Age: 73 Year
  Sex: Female

DRUGS (2)
  1. BONIVA [Suspect]
     Indication: OSTEOPOROSIS
     Dosage: DOSING AMOUNT: 150MG PER MONTH
     Route: 048
     Dates: start: 20050615, end: 20060615
  2. PREDNISONE [Concomitant]
     Route: 048

REACTIONS (1)
  - OSTEONECROSIS [None]
